FAERS Safety Report 8032355-3 (Version None)
Quarter: 2012Q1

REPORT INFORMATION
  Report Type: 
  Country: None (occurrence: None)
  Receive Date: 20120109
  Receipt Date: 20120109
  Transmission Date: 20120608
  Serious: Yes (Hospitalization)
  Sender: FDA-Public Use
  Company Number: None

PATIENT
  Age: 66 Year
  Sex: Male
  Weight: 92.7 kg

DRUGS (1)
  1. MELOXICAM [Suspect]
     Indication: PAIN
     Dosage: 7.5 MG EVERY DAY PO
     Route: 048
     Dates: start: 20110502, end: 20110507

REACTIONS (2)
  - URINARY RETENTION [None]
  - BENIGN PROSTATIC HYPERPLASIA [None]
